FAERS Safety Report 6411188-5 (Version None)
Quarter: 2009Q4

REPORT INFORMATION
  Report Type: 
  Country: None (occurrence: None)
  Receive Date: 20091019
  Receipt Date: 20091005
  Transmission Date: 20100525
  Serious: Yes (Other)
  Sender: FDA-Public Use
  Company Number: 2009278654

PATIENT
  Age: 60 Year
  Sex: Female

DRUGS (1)
  1. FRAGMIN [Suspect]

REACTIONS (1)
  - PHLEBITIS [None]
